FAERS Safety Report 4697674-7 (Version None)
Quarter: 2005Q2

REPORT INFORMATION
  Report Type: 
  Country: None (occurrence: None)
  Receive Date: 20050622
  Receipt Date: 20050607
  Transmission Date: 20051028
  Serious: Yes (Hospitalization)
  Sender: FDA-Public Use
  Company Number: US_990421530

PATIENT
  Age: 75 Year
  Sex: Male
  Weight: 74 kg

DRUGS (7)
  1. ILETIN-PORK NPH INSULIN (INSULIN, ANIMAL) [Suspect]
     Dates: start: 19480101, end: 19970101
  2. ILETIN [Suspect]
     Dates: start: 19480101, end: 19970101
  3. HUMULIN L [Suspect]
     Indication: DIABETES MELLITUS
     Dosage: 24 U/1 DAY
     Dates: start: 19990419
  4. HUMULIN R [Suspect]
     Indication: DIABETES MELLITUS
     Dosage: 8 U AS NEEDED
     Dates: start: 19990405
  5. HUMULIN-HUMAN ULTALENTE INSULIN (RDNA) (HUMAN INSU [Suspect]
     Indication: DIABETES MELLITUS
     Dates: start: 19990405, end: 19990419
  6. HUMULIN N [Suspect]
     Dosage: 31 U DAY
     Dates: start: 19970101
  7. ASPIRIN [Concomitant]

REACTIONS (11)
  - BLOOD GLUCOSE DECREASED [None]
  - BLOOD GLUCOSE FLUCTUATION [None]
  - BLOOD GLUCOSE INCREASED [None]
  - CORONARY ARTERY OCCLUSION [None]
  - DIARRHOEA [None]
  - DRUG INEFFECTIVE [None]
  - INJECTION SITE REACTION [None]
  - LIPOHYPERTROPHY [None]
  - MALABSORPTION [None]
  - MYOCARDIAL INFARCTION [None]
  - PHARMACEUTICAL PRODUCT COMPLAINT [None]
